FAERS Safety Report 13844094 (Version 2)
Quarter: 2017Q4

REPORT INFORMATION
  Report Type: Report from Study
  Country: None (occurrence: US)
  Receive Date: 20170808
  Receipt Date: 20171220
  Transmission Date: 20180320
  Serious: Yes (Hospitalization)
  Sender: FDA-Public Use
  Company Number: US-VIFOR (INTERNATIONAL) INC.-VIT-2017-08281

PATIENT
  Sex: Male
  Weight: 73.09 kg

DRUGS (11)
  1. FLOMAX [Concomitant]
     Active Substance: TAMSULOSIN HYDROCHLORIDE
  2. CARVEDILOL. [Concomitant]
     Active Substance: CARVEDILOL
  3. SODIUM CARBONATE ANHYDROUS [Concomitant]
  4. PROAIR HFA [Concomitant]
     Active Substance: ALBUTEROL SULFATE
  5. COLACE [Concomitant]
     Active Substance: DOCUSATE SODIUM
  6. WARFARIN [Concomitant]
     Active Substance: WARFARIN
  7. FINASTERIDE. [Concomitant]
     Active Substance: FINASTERIDE
  8. LUMIGAN [Concomitant]
     Active Substance: BIMATOPROST
  9. ASCORBIC ACID. [Concomitant]
     Active Substance: ASCORBIC ACID
  10. VELTASSA [Suspect]
     Active Substance: PATIROMER
     Indication: HYPERKALAEMIA
     Route: 048
     Dates: start: 20160928
  11. OMEPRAZOLE. [Concomitant]
     Active Substance: OMEPRAZOLE

REACTIONS (4)
  - Haemorrhage [Recovered/Resolved]
  - Cardiac disorder [Unknown]
  - Abdominal hernia [Recovered/Resolved]
  - Cardiac failure congestive [Recovered/Resolved]

NARRATIVE: CASE EVENT DATE: 2017
